FAERS Safety Report 6891496-4 (Version None)
Quarter: 2010Q3

REPORT INFORMATION
  Report Type: 
  Country: None (occurrence: None)
  Receive Date: 20100731
  Receipt Date: 20070727
  Transmission Date: 20110219
  Serious: Yes (Hospitalization)
  Sender: FDA-Public Use
  Company Number: US-PFIZER INC-2007062428

PATIENT
  Sex: Female
  Weight: 77.1 kg

DRUGS (8)
  1. NORVASC [Suspect]
     Indication: HYPERTENSION
     Dates: start: 20020101
  2. GLUCOPHAGE [Concomitant]
  3. ACTOS [Concomitant]
  4. QUINAPRIL HYDROCHLORIDE [Concomitant]
  5. LABETALOL HCL [Concomitant]
  6. VALIUM [Concomitant]
  7. PROZAC [Concomitant]
  8. ACETYLSALICYLIC ACID SRT [Concomitant]

REACTIONS (7)
  - ABNORMAL DREAMS [None]
  - BLOOD GASES ABNORMAL [None]
  - DRY MOUTH [None]
  - FATIGUE [None]
  - HYPOAESTHESIA [None]
  - SWELLING [None]
  - THIRST [None]
